FAERS Safety Report 4491641-4 (Version None)
Quarter: 2004Q4

REPORT INFORMATION
  Report Type: 
  Country: None (occurrence: None)
  Receive Date: 20041101
  Receipt Date: 20041026
  Transmission Date: 20050328
  Serious: Yes (Death, Life-Threatening, Hospitalization)
  Sender: FDA-Public Use
  Company Number: STA-AE-04-MTX-451

PATIENT
  Age: 74 Year
  Sex: Female

DRUGS (11)
  1. RHEUMATREX [Suspect]
     Indication: RHEUMATOID ARTHRITIS
     Dosage: 4 + 6MG 1X PER 1 WK, ORAL
     Route: 048
     Dates: start: 20020222, end: 20020412
  2. RHEUMATREX [Suspect]
     Indication: RHEUMATOID ARTHRITIS
     Dosage: 4 + 6MG 1X PER 1 WK, ORAL
     Route: 048
     Dates: start: 20020419, end: 20040807
  3. BREDININ (MIZORIBINE) [Concomitant]
  4. PREDNISOLONE [Concomitant]
  5. LOXONIN (LOXOPROFEN SODIUM) [Concomitant]
  6. METHYCOBAL (MECOBALAMIN) [Concomitant]
  7. ZANTAC [Concomitant]
  8. LENDORM [Concomitant]
  9. PURSENNID (SENNA LEAF) [Concomitant]
  10. VOLTAREN [Concomitant]
  11. MAGNESIUM OXIDE (MAGNESIUM OXIDE) [Concomitant]

REACTIONS (6)
  - ACUTE RESPIRATORY FAILURE [None]
  - BRONCHOPNEUMONIA [None]
  - FEELING ABNORMAL [None]
  - LOSS OF CONSCIOUSNESS [None]
  - PANCYTOPENIA [None]
  - SHOCK [None]
